FAERS Safety Report 21993265 (Version 1)
Quarter: 2023Q1

REPORT INFORMATION
  Report Type: Spontaneous
  Country: JP (occurrence: JP)
  Receive Date: 20230215
  Receipt Date: 20230215
  Transmission Date: 20230418
  Serious: Yes (Hospitalization, Other)
  Sender: FDA-Public Use
  Company Number: JP-SUN PHARMACEUTICAL INDUSTRIES LTD-2023R1-377774

PATIENT
  Sex: Male

DRUGS (5)
  1. DEFERASIROX [Suspect]
     Active Substance: DEFERASIROX
     Indication: Neonatal haemochromatosis
     Dosage: 12 MILLIGRAM/KILOGRAM, QD
     Route: 048
  2. URSODIOL [Suspect]
     Active Substance: URSODIOL
     Indication: Neonatal haemochromatosis
     Dosage: UNK
     Route: 065
  3. PHENOBARBITAL [Suspect]
     Active Substance: PHENOBARBITAL
     Indication: Neonatal haemochromatosis
     Dosage: UNK
     Route: 065
  4. LACTULOSE [Suspect]
     Active Substance: LACTULOSE
     Indication: Neonatal haemochromatosis
     Dosage: UNK
     Route: 065
  5. GLYCYRRHIZIN [Suspect]
     Active Substance: GLYCYRRHIZIN
     Indication: Neonatal haemochromatosis
     Dosage: UNK
     Route: 065

REACTIONS (4)
  - Therapy non-responder [Unknown]
  - Abdominal distension [Unknown]
  - Hepatosplenomegaly [Unknown]
  - Hepatic failure [Unknown]
